FAERS Safety Report 5728896-1 (Version None)
Quarter: 2008Q2

REPORT INFORMATION
  Report Type: 
  Country: None (occurrence: None)
  Receive Date: 20080430
  Receipt Date: 20071004
  Transmission Date: 20081010
  Serious: Yes (Hospitalization)
  Sender: FDA-Public Use
  Company Number: E3810-01292-SPO-AU

PATIENT
  Age: 65 Year
  Sex: Male

DRUGS (5)
  1. RABEPRAZOLE SODIUM [Suspect]
     Dosage: 20 MG, ORAL
     Route: 048
     Dates: start: 20061215, end: 20070511
  2. GLUCOSAMINE HYDROCHLORIDE (GLUCOSAMINE HYDROCHLORIDE) [Concomitant]
  3. VALPROATE SODIUM [Concomitant]
  4. LIPITOR [Concomitant]
  5. FISH OIL (FISH OIL) [Concomitant]

REACTIONS (9)
  - BLOOD CREATININE INCREASED [None]
  - C-REACTIVE PROTEIN INCREASED [None]
  - CHILLS [None]
  - FEELING HOT [None]
  - HYPERSENSITIVITY [None]
  - NEPHRITIS INTERSTITIAL [None]
  - PYREXIA [None]
  - RED BLOOD CELL SEDIMENTATION RATE ABNORMAL [None]
  - VOMITING [None]
